FAERS Safety Report 13656519 (Version 3)
Quarter: 2017Q3

REPORT INFORMATION
  Report Type: Report from Study
  Country: JP (occurrence: JP)
  Receive Date: 20170615
  Receipt Date: 20170815
  Transmission Date: 20171127
  Serious: Yes (Other)
  Sender: FDA-Public Use
  Company Number: JP-SA-2017SA105329

PATIENT
  Age: 40 Year
  Sex: Male

DRUGS (2)
  1. RANMARK [Concomitant]
     Active Substance: DENOSUMAB
     Route: 065
     Dates: end: 20170607
  2. VANDETANIB. [Suspect]
     Active Substance: VANDETANIB
     Route: 048

REACTIONS (1)
  - Osteonecrosis of jaw [Not Recovered/Not Resolved]
